FAERS Safety Report 8589944-7 (Version None)
Quarter: 2012Q3

REPORT INFORMATION
  Report Type: 
  Country: None (occurrence: None)
  Receive Date: 20120813
  Receipt Date: 20120808
  Transmission Date: 20120928
  Serious: Yes (Life-Threatening)
  Sender: FDA-Public Use
  Company Number: JP-BRACCO-006155

PATIENT
  Age: 35 Year
  Sex: Female
  Weight: 58 kg

DRUGS (3)
  1. ANTI-ASTHMATICS [Concomitant]
     Route: 048
  2. PROHANCE [Suspect]
     Indication: NUCLEAR MAGNETIC RESONANCE IMAGING BRAIN
     Route: 040
     Dates: start: 20120807, end: 20120807
  3. PROHANCE [Suspect]
     Indication: METASTASES TO CENTRAL NERVOUS SYSTEM
     Route: 040
     Dates: start: 20120807, end: 20120807

REACTIONS (3)
  - CARDIO-RESPIRATORY ARREST [None]
  - HYPOXIC-ISCHAEMIC ENCEPHALOPATHY [None]
  - SHOCK [None]
